FAERS Safety Report 9057479 (Version 1)
Quarter: 2013Q1

REPORT INFORMATION
  Report Type: Spontaneous
  Country: US (occurrence: US)
  Receive Date: 20130204
  Receipt Date: 20130204
  Transmission Date: 20140127
  Serious: Yes (Hospitalization)
  Sender: FDA-Public Use
  Company Number: US-ROXANE LABORATORIES, INC.-2013-RO-00177RO

PATIENT
  Age: 35 Year
  Sex: Male

DRUGS (2)
  1. DEXAMETHASONE [Suspect]
     Indication: CEREBRAL SARCOIDOSIS
  2. DEXAMETHASONE [Suspect]
     Indication: PULMONARY SARCOIDOSIS

REACTIONS (1)
  - Fungal abscess central nervous system [Not Recovered/Not Resolved]
